FAERS Safety Report 20085567 (Version 1)
Quarter: 2021Q4

REPORT INFORMATION
  Report Type: Spontaneous
  Country: US (occurrence: US)
  Receive Date: 20211118
  Receipt Date: 20211118
  Transmission Date: 20220303
  Serious: Yes (Hospitalization, Disabling)
  Sender: FDA-Public Use
  Company Number: US-MYLANLABS-2021M1085092

PATIENT
  Age: 43 Year
  Sex: Female

DRUGS (4)
  1. HEPARIN [Suspect]
     Active Substance: HEPARIN SODIUM
     Indication: Anticoagulant therapy
     Dosage: FLUSHES; 12 HOURS OF HEPARIN
     Route: 042
  2. ARGATROBAN [Suspect]
     Active Substance: ARGATROBAN
     Indication: Heparin-induced thrombocytopenia
     Dosage: 2.5-3.5 MICROG/KG/H FOR 5 DAYS
     Route: 065
  3. ARGATROBAN [Suspect]
     Active Substance: ARGATROBAN
     Dosage: 2-15 MICROG/KG/H
     Route: 065
  4. BIVALIRUDIN [Suspect]
     Active Substance: BIVALIRUDIN
     Indication: Heparin-induced thrombocytopenia
     Dosage: 150-250 MICROG/KG/H FOR 4 DAY
     Route: 065

REACTIONS (10)
  - Heparin-induced thrombocytopenia [Recovered/Resolved]
  - Deep vein thrombosis [Recovered/Resolved]
  - Pulmonary embolism [Recovered/Resolved]
  - Obstructive shock [Unknown]
  - Electrocardiogram ST-T segment abnormal [Unknown]
  - Ischaemic hepatitis [Recovered/Resolved]
  - Dry gangrene [Unknown]
  - Gangrene [Recovered/Resolved with Sequelae]
  - Device related thrombosis [Recovered/Resolved]
  - Drug ineffective [Unknown]
